FAERS Safety Report 4827394-7 (Version None)
Quarter: 2005Q4

REPORT INFORMATION
  Report Type: 
  Country: None (occurrence: None)
  Receive Date: 20051114
  Receipt Date: 20051114
  Transmission Date: 20060501
  Serious: No
  Sender: FDA-Public Use
  Company Number: None

PATIENT

DRUGS (4)
  1. AVELOX [Suspect]
     Dosage: TABLET
  2. LEVAQUIN [Suspect]
     Dosage: TABLET
  3. AMOXICILLIN [Suspect]
  4. CONTRAST DYE [Suspect]
     Dosage: INJECTABLE

REACTIONS (6)
  - ANAPHYLACTOID REACTION [None]
  - CONTRAINDICATION TO MEDICAL TREATMENT [None]
  - DYSPNOEA [None]
  - ERYTHEMA [None]
  - INFUSION RELATED REACTION [None]
  - MEDICATION ERROR [None]
